FAERS Safety Report 8833179 (Version 2)
Quarter: 2013Q3

REPORT INFORMATION
  Report Type: Report from Study
  Country: BR (occurrence: BR)
  Receive Date: 20121010
  Receipt Date: 20130815
  Transmission Date: 20140515
  Serious: Yes (Other)
  Sender: FDA-Public Use
  Company Number: PHHY2012BR089107

PATIENT
  Age: 36 Year
  Sex: Female

DRUGS (1)
  1. TRILEPTAL [Suspect]
     Indication: EPILEPSY
     Dosage: 3 DF (ONE TABLET IN THE MORNING AND TWO AT NIGHT)
     Route: 048

REACTIONS (7)
  - Lumbar vertebral fracture [Recovered/Resolved]
  - Pain [Not Recovered/Not Resolved]
  - Hypokinesia [Not Recovered/Not Resolved]
  - Intervertebral disc protrusion [Not Recovered/Not Resolved]
  - Depression [Unknown]
  - Epilepsy [Recovered/Resolved]
  - Muscle contracture [Recovered/Resolved]
